FAERS Safety Report 10188431 (Version 2)
Quarter: 2014Q2

REPORT INFORMATION
  Report Type: Spontaneous
  Country: US (occurrence: US)
  Receive Date: 20140522
  Receipt Date: 20140522
  Transmission Date: 20141212
  Serious: No
  Sender: FDA-Public Use
  Company Number: US-ASTRAZENECA-2002UW06221

PATIENT
  Age: 526 Month
  Sex: Female
  Weight: 61.2 kg

DRUGS (13)
  1. PULMICORT [Suspect]
     Indication: ASTHMA
     Dosage: 200 MCG PER INHALATION
     Route: 055
     Dates: start: 2001
  2. PULMICORT [Suspect]
     Indication: SEASONAL ALLERGY
     Dosage: 200 MCG PER INHALATION
     Route: 055
     Dates: start: 2001
  3. PULMICORT [Suspect]
     Indication: ASTHMA PROPHYLAXIS
     Dosage: 200 MCG PER INHALATION
     Route: 055
     Dates: start: 2001
  4. PULMICORT [Suspect]
     Indication: ASTHMA
     Dosage: AS NEEDED
     Route: 055
  5. PULMICORT [Suspect]
     Indication: SEASONAL ALLERGY
     Dosage: AS NEEDED
     Route: 055
  6. PULMICORT [Suspect]
     Indication: ASTHMA PROPHYLAXIS
     Dosage: AS NEEDED
     Route: 055
  7. PULMICORT [Suspect]
     Indication: ASTHMA
     Dosage: 180 MCG 1 INHALATION BID
     Route: 055
  8. PULMICORT [Suspect]
     Indication: SEASONAL ALLERGY
     Dosage: 180 MCG 1 INHALATION BID
     Route: 055
  9. PULMICORT [Suspect]
     Indication: ASTHMA PROPHYLAXIS
     Dosage: 180 MCG 1 INHALATION BID
     Route: 055
  10. SEREVENT [Concomitant]
  11. PRO AIR [Concomitant]
     Indication: EMERGENCY CARE
  12. FLONASE [Concomitant]
     Indication: MULTIPLE ALLERGIES
  13. VITAMINS [Concomitant]
     Indication: VITAMIN SUPPLEMENTATION

REACTIONS (2)
  - Abdominal distension [Unknown]
  - Intentional product misuse [Unknown]
